FAERS Safety Report 19072332 (Version 1)
Quarter: 2021Q1

REPORT INFORMATION
  Report Type: Spontaneous
  Country: IT (occurrence: IT)
  Receive Date: 20210330
  Receipt Date: 20210330
  Transmission Date: 20210420
  Serious: Yes (Death)
  Sender: FDA-Public Use
  Company Number: IT-ABBVIE-21K-083-3834557-00

PATIENT
  Age: 41 Year
  Sex: Female

DRUGS (2)
  1. MAVIRET [Suspect]
     Active Substance: GLECAPREVIR\PIBRENTASVIR
     Indication: HEPATITIS C
     Dosage: 100 MG/40 MG
     Route: 048
     Dates: start: 20210222, end: 202102
  2. METHADONE HYDROCHLORIDE. [Concomitant]
     Active Substance: METHADONE HYDROCHLORIDE
     Indication: PRODUCT USED FOR UNKNOWN INDICATION

REACTIONS (5)
  - Chest pain [Fatal]
  - Malaise [Fatal]
  - Pyrexia [Fatal]
  - Headache [Fatal]
  - Myocarditis [Fatal]

NARRATIVE: CASE EVENT DATE: 20210227
